FAERS Safety Report 4315559-2 (Version None)
Quarter: 2004Q1

REPORT INFORMATION
  Report Type: 
  Country: None (occurrence: None)
  Receive Date: 20040311
  Receipt Date: 20040123
  Transmission Date: 20041129
  Serious: Yes (Death)
  Sender: FDA-Public Use
  Company Number: IE-ROCHE-356863

PATIENT
  Age: 38 Year
  Sex: Female

DRUGS (7)
  1. PEGASYS [Suspect]
     Indication: HEPATITIS C
     Dosage: TAKEN WEEKLY
     Route: 058
     Dates: start: 20031208, end: 20040116
  2. COPEGUS [Suspect]
     Indication: HEPATITIS C
     Route: 048
     Dates: start: 20031208, end: 20040116
  3. METHADONE HCL [Concomitant]
  4. DIAZEPAM [Concomitant]
  5. PAROXETINE HCL [Concomitant]
  6. BECOTIDE 100 INHALER [Concomitant]
  7. INDERAL [Concomitant]

REACTIONS (2)
  - MULTI-ORGAN FAILURE [None]
  - PNEUMONITIS [None]
